FAERS Safety Report 5501246-1 (Version None)
Quarter: 2007Q4

REPORT INFORMATION
  Report Type: 
  Country: None (occurrence: None)
  Receive Date: 20071026
  Receipt Date: 20071017
  Transmission Date: 20080405
  Serious: Yes (Other)
  Sender: FDA-Public Use
  Company Number: 2007333526

PATIENT
  Age: 40 Year
  Sex: Female

DRUGS (1)
  1. PURELL ORIGINAL (ETHYL ALCOHOL [Suspect]
     Dosage: TOPICAL
     Route: 061

REACTIONS (4)
  - LACRIMATION INCREASED [None]
  - PHARYNGEAL OEDEMA [None]
  - PRURITUS [None]
  - SPEECH DISORDER [None]
